FAERS Safety Report 19853551 (Version 1)
Quarter: 2021Q3

REPORT INFORMATION
  Report Type: Not Available
  Country: US (occurrence: US)
  Receive Date: 20210919
  Receipt Date: 20210919
  Transmission Date: 20211014
  Serious: No
  Sender: FDA-Public Use
  Company Number: US-RHYTHM PHARMACEUTICALS, INC.-2021RHM000033

PATIENT
  Age: 11 Year
  Sex: Female

DRUGS (1)
  1. IMCIVREE [Suspect]
     Active Substance: SETMELANOTIDE
     Indication: OFF LABEL USE
     Dosage: 3 MG (0.3 ML)
     Route: 058
     Dates: start: 20210707

REACTIONS (2)
  - Off label use [Not Recovered/Not Resolved]
  - Injection site erythema [Recovered/Resolved]

NARRATIVE: CASE EVENT DATE: 20210707
